FAERS Safety Report 4494956-9 (Version None)
Quarter: 2004Q4

REPORT INFORMATION
  Report Type: 
  Country: None (occurrence: None)
  Receive Date: 20041105
  Receipt Date: 20041105
  Transmission Date: 20050328
  Serious: Yes (Other)
  Sender: FDA-Public Use
  Company Number: None

PATIENT
  Age: 89 Year
  Sex: Male
  Weight: 40.3 kg

DRUGS (2)
  1. CITALOPRAM [Suspect]
     Indication: DEPRESSION
     Dosage: 10 MG    DAILY    ORAL
     Route: 048
     Dates: start: 20041014, end: 20041104
  2. CITALOPRAM [Suspect]
     Indication: FAILURE TO THRIVE
     Dosage: 10 MG    DAILY    ORAL
     Route: 048
     Dates: start: 20041014, end: 20041104

REACTIONS (1)
  - DYSKINESIA [None]
